FAERS Safety Report 10035023 (Version 2)
Quarter: 2014Q2

REPORT INFORMATION
  Report Type: Spontaneous
  Country: JP (occurrence: JP)
  Receive Date: 20140325
  Receipt Date: 20140527
  Transmission Date: 20141212
  Serious: Yes (Hospitalization, Other)
  Sender: FDA-Public Use
  Company Number: JP-PFIZER INC-2014079751

PATIENT
  Age: 15 Year
  Sex: Male

DRUGS (4)
  1. AZITHROMYCIN [Suspect]
     Indication: PYREXIA
     Dosage: 500 MG, DAILY
     Route: 048
  2. ACETAMINOPHEN [Concomitant]
     Dosage: UNK
     Route: 048
  3. SOFALCONE [Concomitant]
     Dosage: UNK
     Route: 048
  4. CLOSTRIDIUM BUTYRICUM [Concomitant]
     Dosage: UNK
     Route: 048

REACTIONS (2)
  - Post streptococcal glomerulonephritis [Recovering/Resolving]
  - Rhabdomyolysis [Recovering/Resolving]
